FAERS Safety Report 12114078 (Version 4)
Quarter: 2017Q2

REPORT INFORMATION
  Report Type: Report from Study
  Country: JP (occurrence: JP)
  Receive Date: 20160225
  Receipt Date: 20170508
  Transmission Date: 20170829
  Serious: Yes (Hospitalization)
  Sender: FDA-Public Use
  Company Number: JP-ASTELLAS-2010JP004037

PATIENT
  Age: 37 Year
  Sex: Female
  Weight: 58 kg

DRUGS (108)
  1. TACROLIMUS. [Suspect]
     Active Substance: TACROLIMUS
     Route: 048
     Dates: start: 20080519, end: 20080713
  2. TACROLIMUS. [Suspect]
     Active Substance: TACROLIMUS
     Route: 048
     Dates: start: 20120625, end: 20120729
  3. TACROLIMUS. [Suspect]
     Active Substance: TACROLIMUS
     Route: 048
     Dates: start: 20120730, end: 20120826
  4. TACROLIMUS. [Suspect]
     Active Substance: TACROLIMUS
     Route: 048
     Dates: start: 20120827, end: 20130226
  5. MEDROL [Suspect]
     Active Substance: METHYLPREDNISOLONE
     Route: 048
     Dates: start: 20080219, end: 20080713
  6. MEDROL [Suspect]
     Active Substance: METHYLPREDNISOLONE
     Route: 048
     Dates: start: 20120528, end: 20120624
  7. ZANTAC [Concomitant]
     Active Substance: RANITIDINE HYDROCHLORIDE
     Indication: PROPHYLAXIS
     Dosage: UNK UNK, UNKNOWN FREQ.
     Route: 048
     Dates: end: 20071216
  8. DIOVAN [Concomitant]
     Active Substance: VALSARTAN
     Indication: PROPHYLAXIS
     Route: 048
     Dates: start: 20090416, end: 20090708
  9. DIOVAN [Concomitant]
     Active Substance: VALSARTAN
     Route: 048
     Dates: start: 20120730, end: 20130128
  10. LOXONIN [Concomitant]
     Active Substance: LOXOPROFEN SODIUM
     Indication: ARTHRITIS
     Dosage: AD LIBITUM, TWICE DAILY
     Route: 061
     Dates: start: 20090827, end: 20090902
  11. CLARITH [Concomitant]
     Active Substance: CLARITHROMYCIN
     Indication: VIRAL UPPER RESPIRATORY TRACT INFECTION
     Route: 048
     Dates: start: 20100125, end: 20100131
  12. METHYLPREDNISOLONE. [Concomitant]
     Active Substance: METHYLPREDNISOLONE
     Indication: LUPUS NEPHRITIS
     Route: 065
     Dates: start: 20130325, end: 20130327
  13. METHYLPREDNISOLONE. [Concomitant]
     Active Substance: METHYLPREDNISOLONE
     Indication: VISUAL FIELD DEFECT
     Route: 065
     Dates: start: 20130401, end: 20130401
  14. PREDNISOLONE. [Concomitant]
     Active Substance: PREDNISOLONE
     Route: 048
     Dates: start: 20140901, end: 20140928
  15. PREDNISOLONE. [Concomitant]
     Active Substance: PREDNISOLONE
     Route: 048
     Dates: start: 20141110, end: 20150222
  16. PREDNISOLONE. [Concomitant]
     Active Substance: PREDNISOLONE
     Route: 048
     Dates: start: 20150223, end: 20150329
  17. PREDNISOLONE. [Concomitant]
     Active Substance: PREDNISOLONE
     Route: 048
     Dates: start: 20150902
  18. MAGMITT [Concomitant]
     Active Substance: MAGNESIUM OXIDE
     Indication: CONSTIPATION
     Route: 048
     Dates: start: 20140630, end: 20140831
  19. BONALON [Concomitant]
     Active Substance: ALENDRONATE SODIUM
     Route: 048
     Dates: start: 20140526
  20. DIOVAN [Concomitant]
     Active Substance: VALSARTAN
     Indication: HYPERTENSION
     Route: 048
     Dates: start: 20080218, end: 20090415
  21. DIOVAN [Concomitant]
     Active Substance: VALSARTAN
     Indication: HYPERTENSION
     Route: 048
     Dates: start: 20090806, end: 20100516
  22. FERROMIA [Concomitant]
     Active Substance: FERROUS CITRATE
     Indication: IRON DEFICIENCY ANAEMIA
     Route: 048
     Dates: start: 20081030, end: 20090121
  23. FERROMIA [Concomitant]
     Active Substance: FERROUS CITRATE
     Route: 048
     Dates: start: 20090709, end: 20091007
  24. MUCOSTA [Concomitant]
     Active Substance: REBAMIPIDE
     Indication: ARTHRITIS
     Route: 048
     Dates: start: 20090827, end: 20090902
  25. MUCODYNE [Concomitant]
     Active Substance: CARBOCYSTEINE
     Indication: UPPER RESPIRATORY TRACT INFLAMMATION
     Route: 048
     Dates: start: 20090910, end: 20091007
  26. OPISEZOL-CODEINE [Concomitant]
     Active Substance: HERBALS
     Indication: VIRAL UPPER RESPIRATORY TRACT INFECTION
     Route: 048
     Dates: start: 20100125, end: 20100131
  27. RINDERON VG [Concomitant]
     Active Substance: BETAMETHASONE VALERATE\GENTAMICIN SULFATE
     Indication: DERMATITIS ATOPIC
     Dosage: UNK UNK, TWICE DAILY
     Route: 061
     Dates: start: 20120924, end: 20121104
  28. METHYLPREDNISOLONE. [Concomitant]
     Active Substance: METHYLPREDNISOLONE
     Indication: MENTAL IMPAIRMENT
     Route: 065
     Dates: start: 20130405, end: 20130407
  29. EBRANTIL                           /00631801/ [Concomitant]
     Active Substance: URAPIDIL
     Indication: PROPHYLAXIS
  30. ZYPREXA ZYDIS [Concomitant]
     Active Substance: OLANZAPINE
     Indication: MENTAL IMPAIRMENT
     Route: 048
     Dates: end: 20150810
  31. LUNESTA [Concomitant]
     Active Substance: ESZOPICLONE
     Indication: PRODUCT USED FOR UNKNOWN INDICATION
     Route: 048
  32. SELBEX [Concomitant]
     Active Substance: TEPRENONE
     Indication: GASTRITIS
     Route: 048
     Dates: end: 20090610
  33. METHYLPREDNISOLONE. [Concomitant]
     Active Substance: METHYLPREDNISOLONE
     Indication: MENTAL IMPAIRMENT
     Route: 065
     Dates: start: 20130701, end: 20130703
  34. METHYLPREDNISOLONE. [Concomitant]
     Active Substance: METHYLPREDNISOLONE
     Route: 065
     Dates: start: 20130716, end: 20130718
  35. PREDNISOLONE. [Concomitant]
     Active Substance: PREDNISOLONE
     Route: 048
     Dates: start: 20150827, end: 20150901
  36. RISPERDAL [Concomitant]
     Active Substance: RISPERIDONE
     Indication: MENTAL IMPAIRMENT
     Dosage: UNK UNK, AS NEEDED AT RESTLESSNESS
     Route: 048
     Dates: start: 20140526, end: 20140831
  37. LAXOBERON [Concomitant]
     Active Substance: SODIUM PICOSULFATE
     Indication: CONSTIPATION
     Dosage: APPROPRIATE DOSE, AT BEDTIME
     Route: 048
     Dates: start: 20140630, end: 20140831
  38. UBRETID [Concomitant]
     Active Substance: DISTIGMINE BROMIDE
     Indication: PROPHYLAXIS
  39. QUETIAPINE. [Concomitant]
     Active Substance: QUETIAPINE
     Route: 048
     Dates: start: 20150807, end: 20150818
  40. MICARDIS [Concomitant]
     Active Substance: TELMISARTAN
     Indication: HYPERTENSION
     Route: 048
     Dates: start: 20151006
  41. MEDROL [Suspect]
     Active Substance: METHYLPREDNISOLONE
     Route: 048
     Dates: start: 20080714, end: 20081126
  42. MEDROL [Suspect]
     Active Substance: METHYLPREDNISOLONE
     Route: 048
     Dates: start: 20081127, end: 20120525
  43. BONALON [Concomitant]
     Active Substance: ALENDRONATE SODIUM
     Indication: PROPHYLAXIS
     Dosage: 35 MG, EVERY WEEKLY
     Route: 048
     Dates: end: 20121105
  44. ALLELOCK [Concomitant]
     Active Substance: OLOPATADINE HYDROCHLORIDE
     Indication: DERMATITIS ATOPIC
     Route: 048
     Dates: start: 20121105, end: 20150621
  45. PREDNISOLONE. [Concomitant]
     Active Substance: PREDNISOLONE
     Indication: LUPUS NEPHRITIS
     Route: 048
     Dates: start: 20140310, end: 20140803
  46. LEVOFLOXACIN. [Concomitant]
     Active Substance: LEVOFLOXACIN
     Indication: CONJUNCTIVITIS ALLERGIC
     Dosage: UNK UNK, THRICE DAILY
     Route: 065
     Dates: start: 20141201, end: 20150209
  47. ENDOXAN                            /00021101/ [Concomitant]
     Active Substance: CYCLOPHOSPHAMIDE
     Route: 065
     Dates: start: 20150811, end: 20150811
  48. ENDOXAN                            /00021101/ [Concomitant]
     Active Substance: CYCLOPHOSPHAMIDE
     Route: 065
     Dates: start: 20150916, end: 20150916
  49. GASTER [Concomitant]
     Active Substance: FAMOTIDINE
     Indication: PROPHYLAXIS
     Route: 048
     Dates: start: 20071217, end: 20110515
  50. FERROMIA [Concomitant]
     Active Substance: FERROUS CITRATE
     Route: 048
     Dates: start: 20111003, end: 20120311
  51. ATELEC [Concomitant]
     Active Substance: CILNIDIPINE
     Indication: HYPERTENSION
     Route: 048
     Dates: start: 20081127, end: 20090610
  52. TERNELIN [Concomitant]
     Active Substance: TIZANIDINE
     Indication: MUSCULOSKELETAL STIFFNESS
     Route: 048
     Dates: start: 20090514, end: 20090708
  53. LOXONIN [Concomitant]
     Active Substance: LOXOPROFEN SODIUM
     Indication: ARTHRITIS
     Route: 048
     Dates: start: 20090827, end: 20090902
  54. CLARITH [Concomitant]
     Active Substance: CLARITHROMYCIN
     Indication: UPPER RESPIRATORY TRACT INFLAMMATION
     Route: 048
     Dates: start: 20090910, end: 20091007
  55. MUCODYNE [Concomitant]
     Active Substance: CARBOCYSTEINE
     Indication: VIRAL UPPER RESPIRATORY TRACT INFECTION
     Route: 048
     Dates: start: 20100125, end: 20100131
  56. RINDERON VG [Concomitant]
     Active Substance: BETAMETHASONE VALERATE\GENTAMICIN SULFATE
     Indication: RASH
     Dosage: UNK UNK, THRICE DAILY
     Route: 061
     Dates: start: 20101227
  57. RINDERON VG [Concomitant]
     Active Substance: BETAMETHASONE VALERATE\GENTAMICIN SULFATE
     Indication: PROPHYLAXIS
     Dosage: UNK UNK, TWICE DAILY
     Route: 061
     Dates: start: 20130128, end: 20130320
  58. ALLELOCK [Concomitant]
     Active Substance: OLOPATADINE HYDROCHLORIDE
     Indication: PROPHYLAXIS
  59. METHYLPREDNISOLONE. [Concomitant]
     Active Substance: METHYLPREDNISOLONE
     Route: 065
     Dates: start: 20140307, end: 20140309
  60. METHYLPREDNISOLONE. [Concomitant]
     Active Substance: METHYLPREDNISOLONE
     Route: 065
     Dates: start: 20150731, end: 20150802
  61. SENNOSIDE                          /00571901/ [Concomitant]
     Active Substance: SENNOSIDES A AND B
     Indication: CONSTIPATION
     Dosage: UNK UNK, AS NEEDED
     Route: 048
     Dates: start: 20140116
  62. EBRANTIL                           /00631801/ [Concomitant]
     Active Substance: URAPIDIL
     Indication: MENTAL IMPAIRMENT
     Route: 048
     Dates: start: 20140308
  63. QUETIAPINE. [Concomitant]
     Active Substance: QUETIAPINE
     Route: 048
  64. TACROLIMUS. [Suspect]
     Active Substance: TACROLIMUS
     Route: 048
     Dates: start: 20080714, end: 20120527
  65. DIOVAN [Concomitant]
     Active Substance: VALSARTAN
     Route: 048
     Dates: start: 20101227, end: 201205
  66. ISODINE [Concomitant]
     Active Substance: POVIDONE-IODINE
     Indication: PROPHYLAXIS
     Dosage: UNK UNK, TWICE DAILY
     Route: 002
     Dates: start: 20111128, end: 20120624
  67. RESPLEN [Concomitant]
     Active Substance: EPRAZINONE
     Indication: UPPER RESPIRATORY TRACT INFLAMMATION
     Route: 048
     Dates: start: 20090910, end: 20091007
  68. BIO-THREE [Concomitant]
     Active Substance: HERBALS
     Indication: DIARRHOEA
     Route: 048
     Dates: start: 20120526, end: 20120528
  69. KERATINAMIN [Concomitant]
     Active Substance: UREA
     Indication: DERMATITIS ATOPIC
     Dosage: UNK UNK, TWICE DAILY
     Route: 061
     Dates: start: 20120924, end: 20121104
  70. METHYLPREDNISOLONE. [Concomitant]
     Active Substance: METHYLPREDNISOLONE
     Route: 065
     Dates: start: 20130708, end: 20130710
  71. PREDNISOLONE. [Concomitant]
     Active Substance: PREDNISOLONE
     Indication: MENTAL IMPAIRMENT
     Route: 048
     Dates: start: 20140804, end: 20140831
  72. PREDNISOLONE. [Concomitant]
     Active Substance: PREDNISOLONE
     Route: 048
     Dates: start: 20140929, end: 20141109
  73. PREDNISOLONE. [Concomitant]
     Active Substance: PREDNISOLONE
     Route: 048
     Dates: start: 20150727, end: 20150731
  74. PANTOSIN [Concomitant]
     Active Substance: PANTETHINE
     Indication: CONSTIPATION
     Route: 048
     Dates: start: 20140630, end: 20140831
  75. BAKTAR [Concomitant]
     Active Substance: SULFAMETHOXAZOLE\TRIMETHOPRIM
     Indication: PROPHYLAXIS
     Route: 048
     Dates: start: 20140307, end: 20150621
  76. SENNOSIDE                          /00571901/ [Concomitant]
     Active Substance: SENNOSIDES A AND B
     Indication: CONSTIPATION PROPHYLAXIS
  77. PREDONINE [Concomitant]
     Active Substance: PREDNISOLONE
     Indication: CONJUNCTIVITIS ALLERGIC
     Dosage: UNK UNK, TWICE TO THRICE DAILY
     Route: 061
     Dates: start: 20141208, end: 20150209
  78. NEXIUM [Concomitant]
     Active Substance: ESOMEPRAZOLE MAGNESIUM
     Indication: PRODUCT USED FOR UNKNOWN INDICATION
     Route: 048
     Dates: start: 20150622
  79. OLOPATADINE. [Concomitant]
     Active Substance: OLOPATADINE
     Indication: PROPHYLAXIS
     Route: 048
     Dates: start: 20150622
  80. ZYPREXA ZYDIS [Concomitant]
     Active Substance: OLANZAPINE
     Route: 048
     Dates: start: 20150811, end: 20150818
  81. TACROLIMUS. [Suspect]
     Active Substance: TACROLIMUS
     Route: 048
     Dates: start: 20120528, end: 20120624
  82. MEDROL [Suspect]
     Active Substance: METHYLPREDNISOLONE
     Route: 048
     Dates: start: 20120526, end: 20120527
  83. MEDROL [Suspect]
     Active Substance: METHYLPREDNISOLONE
     Route: 048
     Dates: start: 20120625, end: 20140309
  84. ISODINE [Concomitant]
     Active Substance: POVIDONE-IODINE
     Indication: VIRAL UPPER RESPIRATORY TRACT INFECTION
     Dosage: UNK UNK, UNKNOWN FREQ.
     Route: 002
     Dates: start: 20081030, end: 20090610
  85. PURSENNID                          /00142207/ [Concomitant]
     Active Substance: SENNOSIDES A AND B
     Indication: CONSTIPATION
     Route: 048
     Dates: start: 20120827, end: 20121104
  86. METHYLPREDNISOLONE. [Concomitant]
     Active Substance: METHYLPREDNISOLONE
     Route: 065
     Dates: start: 20130722, end: 20130724
  87. PREDNISOLONE. [Concomitant]
     Active Substance: PREDNISOLONE
     Route: 048
     Dates: start: 20150330, end: 20150621
  88. ZYPREXA ZYDIS [Concomitant]
     Active Substance: OLANZAPINE
     Route: 048
  89. ENDOXAN                            /00021101/ [Concomitant]
     Active Substance: CYCLOPHOSPHAMIDE
     Indication: MENTAL IMPAIRMENT
     Route: 065
     Dates: start: 20140311, end: 20140311
  90. PINUS PALUSTRIS [Concomitant]
     Indication: CONSTIPATION
     Dosage: UNK UNK, FOR CONSTIPATION
     Route: 048
     Dates: start: 20150822
  91. TACROLIMUS. [Suspect]
     Active Substance: TACROLIMUS
     Indication: LUPUS NEPHRITIS
     Route: 048
     Dates: start: 20071119, end: 20080518
  92. TACROLIMUS. [Suspect]
     Active Substance: TACROLIMUS
     Route: 048
     Dates: start: 20140630
  93. MEDROL [Suspect]
     Active Substance: METHYLPREDNISOLONE
     Indication: LUPUS NEPHRITIS
     Route: 048
     Dates: end: 20080218
  94. ISODINE [Concomitant]
     Active Substance: POVIDONE-IODINE
     Dosage: UNK UNK, SEVERAL TIMES DAILY
     Route: 002
     Dates: start: 20161003
  95. RESPLEN [Concomitant]
     Active Substance: EPRAZINONE
     Indication: VIRAL UPPER RESPIRATORY TRACT INFECTION
     Route: 048
     Dates: start: 20100125, end: 20100131
  96. TAKEPRON [Concomitant]
     Active Substance: LANSOPRAZOLE
     Indication: PRODUCT USED FOR UNKNOWN INDICATION
     Route: 048
     Dates: start: 20110516, end: 20150621
  97. METHYLPREDNISOLONE. [Concomitant]
     Active Substance: METHYLPREDNISOLONE
     Route: 065
     Dates: start: 20140221, end: 20140223
  98. METHYLPREDNISOLONE. [Concomitant]
     Active Substance: METHYLPREDNISOLONE
     Route: 065
     Dates: start: 20140228, end: 20140302
  99. PREDNISOLONE. [Concomitant]
     Active Substance: PREDNISOLONE
     Route: 048
     Dates: start: 20150622, end: 20150726
  100. PREDNISOLONE. [Concomitant]
     Active Substance: PREDNISOLONE
     Route: 048
     Dates: start: 20150803, end: 20150826
  101. UBRETID [Concomitant]
     Active Substance: DISTIGMINE BROMIDE
     Indication: MENTAL IMPAIRMENT
     Route: 048
     Dates: start: 20140308
  102. AZUNOL                             /00620101/ [Concomitant]
     Indication: PROPHYLAXIS
     Dosage: UNK UNK, A FEW TIMES DAILY
     Route: 065
     Dates: start: 20140929
  103. PATANOL [Concomitant]
     Active Substance: OLOPATADINE HYDROCHLORIDE
     Indication: CONJUNCTIVITIS ALLERGIC
     Dosage: UNK UNK, 4 TIMES DAILY
     Route: 065
     Dates: start: 20141208, end: 20150209
  104. DAIPHEN [Concomitant]
     Active Substance: SULFAMETHOXAZOLE\TRIMETHOPRIM
     Indication: PROPHYLAXIS
     Route: 048
     Dates: start: 20150622
  105. QUETIAPINE. [Concomitant]
     Active Substance: QUETIAPINE
     Indication: MENTAL IMPAIRMENT
     Route: 048
     Dates: end: 20150806
  106. QUETIAPINE. [Concomitant]
     Active Substance: QUETIAPINE
     Route: 048
     Dates: start: 20150819, end: 20150820
  107. ENDOXAN                            /00021101/ [Concomitant]
     Active Substance: CYCLOPHOSPHAMIDE
     Indication: MENTAL IMPAIRMENT
     Route: 065
     Dates: start: 20140409, end: 20140409
  108. CRESTOR [Concomitant]
     Active Substance: ROSUVASTATIN CALCIUM
     Indication: HYPERCHOLESTEROLAEMIA
     Route: 048
     Dates: start: 20160613

REACTIONS (16)
  - Visual field defect [Not Recovered/Not Resolved]
  - Mental impairment [Recovering/Resolving]
  - Constipation [Recovering/Resolving]
  - Mental impairment [Recovering/Resolving]
  - Diarrhoea [Recovered/Resolved]
  - Conjunctivitis allergic [Recovered/Resolved]
  - Hypercholesterolaemia [Recovering/Resolving]
  - Arthritis [Recovered/Resolved]
  - Rash [Recovered/Resolved]
  - Musculoskeletal stiffness [Recovered/Resolved]
  - Viral upper respiratory tract infection [Recovered/Resolved]
  - Constipation [Recovered/Resolved]
  - Skin erosion [Recovering/Resolving]
  - Hypertension [Recovering/Resolving]
  - Upper respiratory tract inflammation [Recovered/Resolved]
  - Dermatitis atopic [Recovering/Resolving]

NARRATIVE: CASE EVENT DATE: 20080218
